FAERS Safety Report 10371788 (Version 2)
Quarter: 2014Q3

REPORT INFORMATION
  Report Type: Spontaneous
  Country: JP (occurrence: JP)
  Receive Date: 20140808
  Receipt Date: 20140915
  Transmission Date: 20150326
  Serious: Yes (Hospitalization)
  Sender: FDA-Public Use
  Company Number: JP-PFIZER INC-2014219117

PATIENT
  Age: 5 Decade
  Sex: Female

DRUGS (4)
  1. PAXIL [Suspect]
     Active Substance: PAROXETINE HYDROCHLORIDE
     Dosage: 160 MG,  TOTAL
     Route: 048
     Dates: start: 20140329, end: 20140329
  2. AMOXAN [Suspect]
     Active Substance: AMOXAPINE
     Dosage: 90 MG, UNK
     Route: 048
     Dates: start: 20140329, end: 20140329
  3. MEILAX [Suspect]
     Active Substance: ETHYL LOFLAZEPATE
     Dosage: 6 MG, TOTAL
     Route: 048
     Dates: start: 20140329, end: 20140329
  4. JZOLOFT [Suspect]
     Active Substance: SERTRALINE HYDROCHLORIDE
     Dosage: 600 MG, TOTAL
     Route: 048
     Dates: start: 20140329, end: 20140329

REACTIONS (3)
  - Depressed level of consciousness [Recovered/Resolved]
  - Toxicity to various agents [Recovered/Resolved]
  - Overdose [Recovered/Resolved]

NARRATIVE: CASE EVENT DATE: 20140329
